FAERS Safety Report 10190436 (Version 1)
Quarter: 2014Q2

REPORT INFORMATION
  Report Type: Spontaneous
  Country: JP (occurrence: JP)
  Receive Date: 20140522
  Receipt Date: 20140522
  Transmission Date: 20141212
  Serious: Yes (Other)
  Sender: FDA-Public Use
  Company Number: JP-BAXTER-2014BAX025541

PATIENT
  Sex: 0

DRUGS (1)
  1. GAMMAGARD FOR INJECTION 2.5G [Suspect]
     Indication: KAWASAKI^S DISEASE
     Dosage: 1 G/KG
     Route: 042

REACTIONS (2)
  - Coronary artery dilatation [Recovered/Resolved]
  - Drug ineffective [Unknown]
